FAERS Safety Report 4554770-2 (Version None)
Quarter: 2005Q1

REPORT INFORMATION
  Report Type: 
  Country: None (occurrence: None)
  Receive Date: 20050118
  Receipt Date: 20050105
  Transmission Date: 20050727
  Serious: Yes (Hospitalization, Other)
  Sender: FDA-Public Use
  Company Number: PL-GLAXOSMITHKLINE-B0363494A

PATIENT
  Age: 80 Year
  Sex: Female
  Weight: 83 kg

DRUGS (2)
  1. ROSIGLITAZONE MALEATE [Suspect]
     Indication: DEMENTIA ALZHEIMER'S TYPE
     Dosage: 8MG PER DAY
     Route: 048
     Dates: start: 20041110
  2. ATENOLOL [Concomitant]
     Indication: MYOCARDIAL ISCHAEMIA
     Dosage: 150MG THREE TIMES PER DAY
     Route: 048
     Dates: start: 20030101

REACTIONS (6)
  - ASTHENIA [None]
  - ATRIAL FIBRILLATION [None]
  - BLOOD PRESSURE DIASTOLIC DECREASED [None]
  - CHILLS [None]
  - ELECTROCARDIOGRAM T WAVE ABNORMAL [None]
  - ERYSIPELAS [None]
